FAERS Safety Report 5085897-7 (Version None)
Quarter: 2006Q3

REPORT INFORMATION
  Report Type: 
  Country: None (occurrence: None)
  Receive Date: 20060814
  Receipt Date: 20060807
  Transmission Date: 20061208
  Serious: Yes (Other)
  Sender: FDA-Public Use
  Company Number: 200610108BYL

PATIENT
  Age: 7 Year
  Sex: Male
  Weight: 22 kg

DRUGS (3)
  1. GAMIMUNE N 5% [Suspect]
     Indication: KAWASAKI'S DISEASE
     Dosage: 20 G, ONCE, INTRAVENOUS
     Route: 042
     Dates: start: 20060121
  2. ASPIRIN [Suspect]
     Indication: ANTICOAGULANT THERAPY
     Dosage: 700 MG, TOTAL DAILY, ORAL
     Route: 048
     Dates: start: 20060121, end: 20060227
  3. SOLITA T [Concomitant]

REACTIONS (1)
  - ANAPHYLACTIC REACTION [None]
